FAERS Safety Report 20417416 (Version 1)
Quarter: 2022Q1

REPORT INFORMATION
  Report Type: Spontaneous
  Country: US (occurrence: None)
  Receive Date: 20220202
  Receipt Date: 20220202
  Transmission Date: 20220423
  Serious: Yes (Hospitalization)
  Sender: FDA-Public Use
  Company Number: None

PATIENT
  Age: 62 Year
  Sex: Male
  Weight: 100 kg

DRUGS (2)
  1. BAMLANIVIMAB [Suspect]
     Active Substance: BAMLANIVIMAB
     Dates: start: 20210604, end: 20210604
  2. ETESEVIMAB [Suspect]
     Active Substance: ETESEVIMAB
     Dates: start: 20210604, end: 20210604

REACTIONS (5)
  - Feeling hot [None]
  - Hallucination, visual [None]
  - Hyperhidrosis [None]
  - Blood pressure decreased [None]
  - Syncope [None]

NARRATIVE: CASE EVENT DATE: 20210604
